FAERS Safety Report 6894737-2 (Version None)
Quarter: 2010Q3

REPORT INFORMATION
  Report Type: 
  Country: None (occurrence: None)
  Receive Date: 20100708
  Receipt Date: 20100413
  Transmission Date: 20110219
  Serious: Yes (Other)
  Sender: FDA-Public Use
  Company Number: 2010047187

PATIENT
  Sex: Male

DRUGS (1)
  1. CHANTIX [Suspect]
     Dosage: ORAL
     Route: 048

REACTIONS (3)
  - DEPRESSED MOOD [None]
  - LETHARGY [None]
  - NAUSEA [None]
